FAERS Safety Report 11883500 (Version 3)
Quarter: 2016Q2

REPORT INFORMATION
  Report Type: Report from Study
  Country: CA (occurrence: CA)
  Receive Date: 20151231
  Receipt Date: 20160601
  Transmission Date: 20160815
  Serious: Yes (Other)
  Sender: FDA-Public Use
  Company Number: PHHY2015CA103432

PATIENT
  Sex: Female

DRUGS (3)
  1. EXJADE [Suspect]
     Active Substance: DEFERASIROX
     Dosage: 3 DF OF 250 MG, QD (750 MG)
     Route: 048
     Dates: start: 20160319
  2. EXJADE [Suspect]
     Active Substance: DEFERASIROX
     Indication: MYELODYSPLASTIC SYNDROME
     Dosage: 5 DF OF 250 MG, QD (1250 MG)
     Route: 048
     Dates: start: 20130905
  3. EXJADE [Suspect]
     Active Substance: DEFERASIROX
     Indication: ANAEMIA
     Dosage: 3 DF OF 250 MG, QD (750 MG)
     Route: 048

REACTIONS (2)
  - Haemoglobin increased [Unknown]
  - Eye haemorrhage [Unknown]
